FAERS Safety Report 6647889-3 (Version None)
Quarter: 2010Q1

REPORT INFORMATION
  Report Type: 
  Country: None (occurrence: None)
  Receive Date: 20100324
  Receipt Date: 20100316
  Transmission Date: 20100710
  Serious: Yes (Other)
  Sender: FDA-Public Use
  Company Number: US-ABBOTT-10P-163-0630541-00

PATIENT
  Sex: Female

DRUGS (3)
  1. HUMIRA [Suspect]
     Indication: CROHN'S DISEASE
     Route: 058
     Dates: start: 20080101, end: 20100101
  2. HUMIRA [Interacting]
     Route: 058
  3. UNKNOWN ANTIDEPRESSENT [Interacting]
     Indication: DRUG USE FOR UNKNOWN INDICATION
     Dates: start: 20090101, end: 20090101

REACTIONS (4)
  - CONVULSION [None]
  - DRUG INTERACTION [None]
  - INFECTION [None]
  - TREMOR [None]
